FAERS Safety Report 9096328 (Version 1)
Quarter: 2013Q1

REPORT INFORMATION
  Report Type: Spontaneous
  Country: US (occurrence: US)
  Receive Date: 20130207
  Receipt Date: 20130207
  Transmission Date: 20140127
  Serious: Yes (Hospitalization)
  Sender: FDA-Public Use
  Company Number: US-BAYER-2013-013554

PATIENT
  Age: 36 Year
  Sex: Male
  Weight: 87 kg

DRUGS (1)
  1. BETASERON [Suspect]
     Indication: MULTIPLE SCLEROSIS
     Dosage: 0.25 MG, QOD
     Route: 058

REACTIONS (6)
  - Gait disturbance [None]
  - Weight decreased [None]
  - Injection site pain [None]
  - Injection site mass [None]
  - Depression [None]
  - Asthenia [None]
